FAERS Safety Report 10340183 (Version 1)
Quarter: 2014Q3

REPORT INFORMATION
  Report Type: Spontaneous
  Country: IT (occurrence: IT)
  Receive Date: 20140724
  Receipt Date: 20140724
  Transmission Date: 20150326
  Serious: Yes (Hospitalization)
  Sender: FDA-Public Use
  Company Number: IT-BRISTOL-MYERS SQUIBB COMPANY-21224787

PATIENT
  Age: 74 Year
  Sex: Female

DRUGS (5)
  1. SOTALOL HCL TABS [Concomitant]
     Active Substance: SOTALOL HYDROCHLORIDE
     Route: 048
  2. COUMADIN [Suspect]
     Active Substance: WARFARIN SODIUM
     Indication: CARDIAC VALVE PROSTHESIS USER
     Dosage: LAST DOSE ON 10JUL14.
     Route: 048
     Dates: start: 20081201
  3. PROVISACOR [Concomitant]
     Active Substance: ROSUVASTATIN
  4. EUTIROX [Concomitant]
     Active Substance: LEVOTHYROXINE SODIUM
  5. CIPRALEX [Concomitant]
     Active Substance: ESCITALOPRAM OXALATE

REACTIONS (2)
  - Fall [Recovering/Resolving]
  - Haemarthrosis [Recovering/Resolving]

NARRATIVE: CASE EVENT DATE: 20140711
